FAERS Safety Report 5678853-9 (Version None)
Quarter: 2008Q1

REPORT INFORMATION
  Report Type: 
  Country: None (occurrence: None)
  Receive Date: 20080321
  Receipt Date: 20080312
  Transmission Date: 20080703
  Serious: Yes (Hospitalization)
  Sender: FDA-Public Use
  Company Number: 2007US002904

PATIENT
  Age: 60 Year
  Sex: Male

DRUGS (10)
  1. PROGRAF [Suspect]
     Indication: RENAL TRANSPLANT
     Dosage: 0.5 MG, BID, ORAL
     Route: 048
     Dates: start: 20060805
  2. MYCOPHENOLATE MOFETIL [Suspect]
     Indication: RENAL TRANSPLANT
     Dosage: 1000 MG, BID, ORAL
     Route: 048
     Dates: start: 20060805, end: 20071029
  3. MYCOPHENOLATE MOFETIL [Suspect]
     Indication: RENAL TRANSPLANT
     Dosage: 1000 MG, BID, ORAL
     Route: 048
     Dates: start: 20071230
  4. PREDNISOLONE ACETATE [Suspect]
     Indication: RENAL TRANSPLANT
     Dosage: 2.5 MG, QOD, ORAL
     Route: 048
     Dates: start: 20060805, end: 20071001
  5. SOLU-MEDROL [Suspect]
     Indication: RENAL TRANSPLANT
     Dosage: IV NOS
     Route: 042
     Dates: start: 20060804
  6. FLOMAX [Concomitant]
  7. NEURONTIN [Concomitant]
  8. NEXUM (ESOMEPRAZOLE MAGNESIUM) [Concomitant]
  9. SEREVENT [Concomitant]
  10. VALTREX [Concomitant]

REACTIONS (2)
  - OSTEONECROSIS [None]
  - TREATMENT NONCOMPLIANCE [None]
